FAERS Safety Report 6175342-2 (Version None)
Quarter: 2009Q2

REPORT INFORMATION
  Report Type: 
  Country: None (occurrence: None)
  Receive Date: 20090429
  Receipt Date: 20090420
  Transmission Date: 20091009
  Serious: Yes (Hospitalization)
  Sender: FDA-Public Use
  Company Number: US024972

PATIENT
  Sex: Female

DRUGS (2)
  1. FENTANYL CITRATE [Suspect]
     Indication: FIBROMYALGIA
     Dosage: 1200 MCG, BU
     Route: 002
     Dates: end: 20080101
  2. DURAGESIC-100 [Concomitant]

REACTIONS (1)
  - UNEVALUABLE EVENT [None]
